FAERS Safety Report 26208944 (Version 1)
Quarter: 2025Q4

REPORT INFORMATION
  Report Type: Spontaneous
  Country: US (occurrence: US)
  Receive Date: 20251229
  Receipt Date: 20251229
  Transmission Date: 20260118
  Serious: Yes (Life-Threatening, Hospitalization)
  Sender: AMGEN
  Company Number: US-AMGEN-USASP2025254143

PATIENT
  Age: 71 Year
  Sex: Male

DRUGS (10)
  1. RITUXIMAB [Suspect]
     Active Substance: RITUXIMAB
     Indication: Epstein-Barr virus associated lymphoma
     Dosage: UNK (2 DOSES)
     Route: 065
  2. RITUXIMAB [Suspect]
     Active Substance: RITUXIMAB
     Indication: B-cell lymphoma
  3. BRENTUXIMAB VEDOTIN [Concomitant]
     Active Substance: BRENTUXIMAB VEDOTIN
     Indication: Epstein-Barr virus associated lymphoma
     Dosage: 6 CYCLES
  4. BRENTUXIMAB VEDOTIN [Concomitant]
     Active Substance: BRENTUXIMAB VEDOTIN
     Indication: B-cell lymphoma
  5. DOXORUBICIN [Concomitant]
     Active Substance: DOXORUBICIN
     Indication: Epstein-Barr virus associated lymphoma
     Dosage: 6 CYCLES
  6. DOXORUBICIN [Concomitant]
     Active Substance: DOXORUBICIN
     Indication: B-cell lymphoma
  7. VINBLASTINE [Concomitant]
     Active Substance: VINBLASTINE
     Indication: Epstein-Barr virus associated lymphoma
     Dosage: 6 CYCLES
  8. VINBLASTINE [Concomitant]
     Active Substance: VINBLASTINE
     Indication: B-cell lymphoma
  9. DACARBAZINE [Concomitant]
     Active Substance: DACARBAZINE
     Indication: Epstein-Barr virus associated lymphoma
  10. DACARBAZINE [Concomitant]
     Active Substance: DACARBAZINE
     Indication: B-cell lymphoma

REACTIONS (1)
  - Cerebral toxoplasmosis [Unknown]
